FAERS Safety Report 24340455 (Version 1)
Quarter: 2024Q3

REPORT INFORMATION
  Report Type: Spontaneous
  Country: US (occurrence: US)
  Receive Date: 20240919
  Receipt Date: 20240919
  Transmission Date: 20241016
  Serious: No
  Sender: SANOFI AVENTIS
  Company Number: US-SA-2024SA263294

PATIENT
  Age: 35 Year
  Sex: Male

DRUGS (1)
  1. ALTUVIIIO [Suspect]
     Active Substance: EFANESOCTOCOG ALFA
     Indication: Haemophilia A without inhibitors
     Dosage: 40 IU/KG, EVERY 4 DAYS
     Route: 042

REACTIONS (1)
  - Off label use [Unknown]
